FAERS Safety Report 7360476-7 (Version None)
Quarter: 2011Q1

REPORT INFORMATION
  Report Type: 
  Country: None (occurrence: None)
  Receive Date: 20110318
  Receipt Date: 20110306
  Transmission Date: 20110831
  Serious: Yes (Hospitalization)
  Sender: FDA-Public Use
  Company Number: JP-JNJFOC-20110206730

PATIENT
  Sex: Female
  Weight: 44 kg

DRUGS (19)
  1. GASCON [Concomitant]
     Indication: ENTEROCOLITIS
  2. BIOFERMIN R [Concomitant]
     Indication: ENTEROCOLITIS
     Route: 048
  3. KETOTIFEN FUMARATE [Concomitant]
     Indication: CONJUNCTIVITIS ALLERGIC
     Route: 031
  4. APHTASOLON [Concomitant]
     Indication: STOMATITIS
     Route: 049
  5. GOLIMUMAB [Suspect]
     Indication: RHEUMATOID ARTHRITIS
     Route: 058
  6. CELECOX [Concomitant]
     Indication: RHEUMATOID ARTHRITIS
     Route: 048
  7. FELBINAC [Concomitant]
     Indication: PERIARTHRITIS
  8. FLUOROMETHOLONE [Concomitant]
  9. GOLIMUMAB [Suspect]
     Route: 058
  10. METHOTREXATE [Concomitant]
     Indication: RHEUMATOID ARTHRITIS
     Route: 048
  11. TAKEPRON [Concomitant]
     Indication: GASTRITIS PROPHYLAXIS
     Route: 048
  12. SEDIEL [Concomitant]
     Indication: ILL-DEFINED DISORDER
     Route: 048
  13. SODIUM RISEDRONATE HYDRATE [Concomitant]
  14. GOLIMUMAB [Suspect]
     Route: 058
  15. CEREKINON [Concomitant]
     Indication: ENTEROCOLITIS
     Route: 048
  16. KETOPROFEN [Concomitant]
     Indication: SPONDYLOLISTHESIS
     Route: 062
  17. METHYCOBAL [Concomitant]
     Indication: VERTIGO
     Route: 048
  18. FOLIAMIN [Concomitant]
     Indication: PROPHYLAXIS
     Route: 048
  19. MERISLON [Concomitant]
     Indication: ILL-DEFINED DISORDER
     Route: 048

REACTIONS (1)
  - ABSCESS JAW [None]
